FAERS Safety Report 25462588 (Version 1)
Quarter: 2025Q2

REPORT INFORMATION
  Report Type: Spontaneous
  Country: DE (occurrence: DE)
  Receive Date: 20250620
  Receipt Date: 20250620
  Transmission Date: 20250716
  Serious: Yes (Other)
  Sender: TEVA
  Company Number: DE-TEVA-VS-3314754

PATIENT
  Age: 48 Year
  Sex: Male

DRUGS (4)
  1. ASPIRIN [Suspect]
     Active Substance: ASPIRIN
     Indication: Cerebrovascular accident
     Dosage: DOSAGE:  1-0-0-0
     Route: 065
  2. ACETAMINOPHEN [Suspect]
     Active Substance: ACETAMINOPHEN
     Indication: Product used for unknown indication
     Route: 065
  3. PANTOPRAZOLE SODIUM [Suspect]
     Active Substance: PANTOPRAZOLE SODIUM
     Indication: Product used for unknown indication
     Route: 065
  4. VITAMIN B COMPLEX [Suspect]
     Active Substance: CYANOCOBALAMIN\DEXPANTHENOL\NIACINAMIDE\PYRIDOXINE HYDROCHLORIDE\RIBOFLAVIN 5^-PHOSPHATE SODIUM\THIA
     Indication: Product used for unknown indication
     Route: 065

REACTIONS (15)
  - Mast cell activation syndrome [Unknown]
  - Drug intolerance [Unknown]
  - Ehlers-Danlos syndrome [Unknown]
  - Blood immunoglobulin E increased [Unknown]
  - Tinnitus [Unknown]
  - Mannose-binding lectin deficiency [Unknown]
  - Corneal disorder [Unknown]
  - Abdominal pain [Unknown]
  - Discomfort [Unknown]
  - Hypermobility syndrome [Unknown]
  - Irritability [Unknown]
  - Histamine level increased [Unknown]
  - Drug-disease interaction [Unknown]
  - Hypersensitivity [Unknown]
  - Fatigue [Unknown]
